FAERS Safety Report 18453069 (Version 1)
Quarter: 2020Q4

REPORT INFORMATION
  Report Type: Report from Study
  Country: CO (occurrence: CO)
  Receive Date: 20201102
  Receipt Date: 20201102
  Transmission Date: 20210114
  Serious: Yes (Other)
  Sender: FDA-Public Use
  Company Number: CO-JNJFOC-20201037288

PATIENT
  Age: 70 Year
  Sex: Female
  Weight: 57 kg

DRUGS (7)
  1. CALCIUM [Concomitant]
     Active Substance: CALCIUM
  2. FOLIC ACID. [Concomitant]
     Active Substance: FOLIC ACID
  3. THALIDOMIDE [Concomitant]
     Active Substance: THALIDOMIDE
  4. SIMPONI [Suspect]
     Active Substance: GOLIMUMAB
     Indication: RHEUMATOID ARTHRITIS
     Route: 058
     Dates: start: 20170817
  5. COLLAGEN [Concomitant]
     Active Substance: COLLAGEN
  6. LOSARTAN. [Concomitant]
     Active Substance: LOSARTAN
  7. VITAMIN C [Concomitant]
     Active Substance: ASCORBIC ACID

REACTIONS (2)
  - Neoplasm malignant [Not Recovered/Not Resolved]
  - Tuberculin test positive [Not Recovered/Not Resolved]

NARRATIVE: CASE EVENT DATE: 20201019
